FAERS Safety Report 7020157-6 (Version None)
Quarter: 2010Q3

REPORT INFORMATION
  Report Type: 
  Country: None (occurrence: None)
  Receive Date: 20100929
  Receipt Date: 20100810
  Transmission Date: 20110219
  Serious: No
  Sender: FDA-Public Use
  Company Number: US-JNJFOC-20100803283

PATIENT
  Age: 50 Year
  Sex: Male
  Weight: 94.35 kg

DRUGS (10)
  1. INVEGA SUSTENNA [Suspect]
     Indication: SCHIZOPHRENIA
     Route: 030
  2. INVEGA SUSTENNA [Suspect]
     Route: 030
  3. GLYBURIDE [Concomitant]
     Indication: DIABETES MELLITUS
  4. OMEPRAZOLE [Concomitant]
     Indication: GASTROOESOPHAGEAL REFLUX DISEASE
  5. COZAAR [Concomitant]
     Indication: PRODUCT USED FOR UNKNOWN INDICATION
  6. AMLODIPINE [Concomitant]
     Indication: HYPERTENSION
  7. LIPITOR [Concomitant]
     Indication: DYSLIPIDAEMIA
  8. LANTUS [Concomitant]
     Indication: DIABETES MELLITUS
  9. ASPIRIN [Concomitant]
     Indication: PROPHYLAXIS
  10. VITAMIN D [Concomitant]
     Indication: NUTRITIONAL SUPPORT

REACTIONS (3)
  - INJECTION SITE NODULE [None]
  - INJECTION SITE PRURITUS [None]
  - INJECTION SITE SWELLING [None]
